FAERS Safety Report 11679844 (Version 2)
Quarter: 2015Q4

REPORT INFORMATION
  Report Type: Spontaneous
  Country: US (occurrence: US)
  Receive Date: 20151027
  Receipt Date: 20151104
  Transmission Date: 20160304
  Serious: No
  Sender: FDA-Public Use
  Company Number: US-ELI_LILLY_AND_COMPANY-US201003001542

PATIENT
  Age: 63 Year
  Sex: Female

DRUGS (13)
  1. VESICARE [Concomitant]
     Active Substance: SOLIFENACIN SUCCINATE
     Indication: INCONTINENCE
  2. LOVAZA [Concomitant]
     Active Substance: OMEGA-3-ACID ETHYL ESTERS
     Dosage: UNK, 2/D
     Dates: start: 201003
  3. FISH OIL [Concomitant]
     Active Substance: FISH OIL
     Indication: BLOOD CHOLESTEROL
  4. FORTEO [Suspect]
     Active Substance: TERIPARATIDE
     Dosage: 20 UG, DAILY (1/D)
     Route: 065
  5. RESTYLANE [Concomitant]
     Active Substance: HYALURONIC ACID
     Dates: start: 20100222
  6. KETOPROFEN. [Concomitant]
     Active Substance: KETOPROFEN
     Indication: ARTHRALGIA
     Dosage: 2 D/F, DAILY (1/D)
  7. KETOPROFEN. [Concomitant]
     Active Substance: KETOPROFEN
     Dosage: 2 D/F, DAILY (1/D)
  8. FORTEO [Suspect]
     Active Substance: TERIPARATIDE
     Dosage: 20 UG, DAILY (1/D)
  9. FORTEO [Suspect]
     Active Substance: TERIPARATIDE
     Dosage: 20 UG, QD
  10. LOVAZA [Concomitant]
     Active Substance: OMEGA-3-ACID ETHYL ESTERS
     Dosage: UNK, DAILY (1/D)
  11. FORTEO [Suspect]
     Active Substance: TERIPARATIDE
     Dosage: 20 UG, DAILY (1/D)
  12. FORTEO [Suspect]
     Active Substance: TERIPARATIDE
     Indication: OSTEOPOROSIS
     Dosage: 20 UG, QD
     Route: 065
     Dates: start: 20100121
  13. LOVAZA [Concomitant]
     Active Substance: OMEGA-3-ACID ETHYL ESTERS
     Dosage: UNK, 2/W

REACTIONS (26)
  - Pain [Recovered/Resolved]
  - Arthritis [Unknown]
  - Dysstasia [Recovered/Resolved]
  - Nausea [Recovered/Resolved]
  - Injection site pain [Recovering/Resolving]
  - Blood calcium increased [Not Recovered/Not Resolved]
  - Contusion [Not Recovered/Not Resolved]
  - Fatigue [Recovering/Resolving]
  - Vomiting [Recovered/Resolved]
  - Injection site bruising [Not Recovered/Not Resolved]
  - Pain in extremity [Unknown]
  - Gait disturbance [Recovered/Resolved]
  - Constipation [Unknown]
  - Muscle spasms [Unknown]
  - Vision blurred [Not Recovered/Not Resolved]
  - Accident [Recovered/Resolved]
  - Muscular weakness [Unknown]
  - Hypoaesthesia [Recovered/Resolved]
  - Malaise [Recovered/Resolved]
  - Fall [Recovered/Resolved]
  - Pain in extremity [Recovered/Resolved]
  - Road traffic accident [Unknown]
  - Arthralgia [Unknown]
  - Weight increased [Not Recovered/Not Resolved]
  - Muscular weakness [Recovered/Resolved]
  - Fall [Recovered/Resolved]

NARRATIVE: CASE EVENT DATE: 20100121
